FAERS Safety Report 23382907 (Version 3)
Quarter: 2024Q1

REPORT INFORMATION
  Report Type: Spontaneous
  Country: US (occurrence: US)
  Receive Date: 20240109
  Receipt Date: 20240329
  Transmission Date: 20240410
  Serious: Yes (Hospitalization)
  Sender: FDA-Public Use
  Company Number: US-BAYER-2024A002135

PATIENT
  Age: 27 Year
  Sex: Female

DRUGS (3)
  1. MIRENA [Suspect]
     Active Substance: LEVONORGESTREL
     Indication: Complement deficiency disease
     Dosage: 20?G/DAY
     Route: 015
     Dates: start: 201802
  2. TAKHZYRO [Concomitant]
     Active Substance: LANADELUMAB-FLYO
  3. EPINEPHRINE [Concomitant]
     Active Substance: EPINEPHRINE

REACTIONS (10)
  - COVID-19 [None]
  - Abdominal distension [Recovered/Resolved]
  - Abdominal distension [Recovered/Resolved]
  - Off label use of device [None]
  - Device use issue [None]
  - Abdominal distension [Recovered/Resolved]
  - Abdominal distension [Recovered/Resolved]
  - Abdominal distension [Recovered/Resolved]
  - Abdominal distension [Recovered/Resolved]
  - Abdominal distension [Recovered/Resolved]

NARRATIVE: CASE EVENT DATE: 20231214
